FAERS Safety Report 10193804 (Version 1)
Quarter: 2014Q2

REPORT INFORMATION
  Report Type: Spontaneous
  Country: US (occurrence: US)
  Receive Date: 20140524
  Receipt Date: 20140524
  Transmission Date: 20141212
  Serious: No
  Sender: FDA-Public Use
  Company Number: US-SANOFI-AVENTIS-2013SA047856

PATIENT
  Age: 51 Year
  Sex: Female

DRUGS (8)
  1. LANTUS [Suspect]
     Dosage: DOSE:100 UNIT(S)
  2. EFFEXOR [Concomitant]
  3. ABILIFY [Concomitant]
  4. ATENOLOL [Concomitant]
  5. AMITRIPTYLINE [Concomitant]
  6. NEURONTIN [Concomitant]
  7. ESTROGEL [Concomitant]
  8. PROVERA [Concomitant]

REACTIONS (1)
  - Arthralgia [Unknown]
